FAERS Safety Report 18197836 (Version 4)
Quarter: 2020Q3

REPORT INFORMATION
  Report Type: Spontaneous
  Country: AR (occurrence: AR)
  Receive Date: 20200826
  Receipt Date: 20200909
  Transmission Date: 20201103
  Serious: Yes (Death, Hospitalization, Other)
  Sender: FDA-Public Use
  Company Number: AR-PFIZER INC-2020327753

PATIENT
  Age: 67 Year
  Sex: Male

DRUGS (2)
  1. DACOMITINIB [Suspect]
     Active Substance: DACOMITINIB
     Indication: NON-SMALL CELL LUNG CANCER
     Dosage: 45 MG, DAILY
  2. DACOMITINIB [Suspect]
     Active Substance: DACOMITINIB
     Dosage: 45 MG
     Dates: start: 20200822

REACTIONS (6)
  - Death [Fatal]
  - Oesophageal achalasia [Unknown]
  - Product use issue [Unknown]
  - Dysphagia [Unknown]
  - Pulmonary embolism [Unknown]
  - Off label use [Unknown]

NARRATIVE: CASE EVENT DATE: 20200822
